FAERS Safety Report 5429516-6 (Version None)
Quarter: 2007Q3

REPORT INFORMATION
  Report Type: 
  Country: None (occurrence: None)
  Receive Date: 20070829
  Receipt Date: 20070822
  Transmission Date: 20080115
  Serious: Yes (Other)
  Sender: FDA-Public Use
  Company Number: FR-JNJFOC-20070802989

PATIENT
  Sex: Male
  Weight: 90 kg

DRUGS (12)
  1. RISPERDAL [Suspect]
     Indication: PSYCHOTIC DISORDER
     Route: 048
  2. RISPERDAL [Suspect]
     Indication: HALLUCINATION
     Route: 048
  3. RISPERDAL [Suspect]
     Indication: DELIRIUM
     Route: 048
  4. RISPERDAL [Suspect]
     Indication: DISSOCIATIVE IDENTITY DISORDER
     Route: 048
  5. HALDOL [Suspect]
     Indication: PSYCHOTIC DISORDER
     Route: 048
  6. HALDOL [Suspect]
     Indication: HALLUCINATION
     Route: 048
  7. HALDOL [Suspect]
     Indication: DELIRIUM
     Route: 048
  8. HALDOL [Suspect]
     Indication: DISSOCIATIVE IDENTITY DISORDER
     Route: 048
  9. TERCIAN [Suspect]
     Indication: PSYCHOTIC DISORDER
     Route: 048
  10. TERCIAN [Suspect]
     Indication: HALLUCINATION
     Route: 048
  11. TERCIAN [Suspect]
     Indication: DELIRIUM
     Route: 048
  12. TERCIAN [Suspect]
     Indication: DISSOCIATIVE IDENTITY DISORDER
     Route: 048

REACTIONS (3)
  - ASTHENIA [None]
  - ELECTROCARDIOGRAM QT PROLONGED [None]
  - HYPOTENSION [None]
